FAERS Safety Report 22346635 (Version 1)
Quarter: 2023Q2

REPORT INFORMATION
  Report Type: Spontaneous
  Country: GB (occurrence: GB)
  Receive Date: 20230520
  Receipt Date: 20230520
  Transmission Date: 20230722
  Serious: Yes (Other)
  Sender: FDA-Public Use
  Company Number: GB-MHRA-TPP20271173C9417377YC1681460255646

PATIENT
  Age: 78 Year
  Sex: Female
  Weight: 64 kg

DRUGS (13)
  1. ROSUVASTATIN CALCIUM [Suspect]
     Active Substance: ROSUVASTATIN CALCIUM
     Indication: Product used for unknown indication
     Dosage: UNK
     Route: 065
     Dates: start: 20230414
  2. ALENDRONIC ACID [Concomitant]
     Active Substance: ALENDRONIC ACID
     Indication: Ill-defined disorder
     Dosage: 1 DOSAGE FORM, EVERY WEEK(TAKE ONE WEEKLY)
     Route: 065
     Dates: start: 20211217
  3. ATORVASTATIN [Concomitant]
     Active Substance: ATORVASTATIN
     Indication: Ill-defined disorder
     Dosage: 1 DOSAGE FORM, DAILY(TAKE ONE DAILY)
     Route: 065
     Dates: start: 20230209, end: 20230228
  4. EZETIMIBE [Concomitant]
     Active Substance: EZETIMIBE
     Indication: Ill-defined disorder
     Dosage: 1 DOSAGE FORM, DAILY(TAKE 1 DAILY)
     Route: 065
     Dates: start: 20230414
  5. FEXOFENADINE [Concomitant]
     Active Substance: FEXOFENADINE HYDROCHLORIDE
     Indication: Ill-defined disorder
     Dosage: 1 DOSAGE FORM, DAILY(TAKE ONE DAILY)
     Route: 065
     Dates: start: 20211217
  6. HYDRALAZINE [Concomitant]
     Active Substance: HYDRALAZINE HYDROCHLORIDE
     Indication: Ill-defined disorder
     Dosage: 2 DOSAGE FORM, TWO TIMES A DAY(TAKE TWO TABLETS(50MG) TWICE DAILY)
     Route: 065
     Dates: start: 20211217
  7. HYDRALAZINE [Concomitant]
     Active Substance: HYDRALAZINE HYDROCHLORIDE
     Dosage: 50 MILLIGRAM, TWO TIMES A DAY
     Route: 065
     Dates: start: 20211217
  8. LEVOTHYROXINE [Concomitant]
     Active Substance: LEVOTHYROXINE
     Indication: Ill-defined disorder
     Dosage: 1 DOSAGE FORM, DAILY(TAKE ONE DAILY)
     Route: 065
     Dates: start: 20211217
  9. LOSARTAN [Concomitant]
     Active Substance: LOSARTAN
     Indication: Ill-defined disorder
     Dosage: UNK, TWO TIMES A DAY(TO BE TAKEN TWICE DAILY)
     Route: 065
     Dates: start: 20220707
  10. OMEPRAZOLE [Concomitant]
     Active Substance: OMEPRAZOLE
     Indication: Ill-defined disorder
     Dosage: 2 DOSAGE FORM, DAILY(2 DAILY)
     Route: 065
     Dates: start: 20211217
  11. ROSUVASTATIN [Concomitant]
     Active Substance: ROSUVASTATIN
     Indication: Ill-defined disorder
     Dosage: 1 DOSAGE FORM, EVERY OTHER DAY(TAKE ONE EVERY OTHER DAY)
     Route: 065
     Dates: start: 20230314
  12. SERETIDE [Concomitant]
     Active Substance: FLUTICASONE PROPIONATE\SALMETEROL XINAFOATE
     Indication: Ill-defined disorder
     Dosage: 2 DOSAGE FORM, TWO TIMES A DAY
     Route: 055
     Dates: start: 20211217
  13. VENTOLIN [Concomitant]
     Active Substance: ALBUTEROL SULFATE
     Indication: Ill-defined disorder
     Dosage: 2 DOSAGE FORM, AS NECESSARY
     Route: 055
     Dates: start: 20211217

REACTIONS (1)
  - Arthritis [Recovered/Resolved]

NARRATIVE: CASE EVENT DATE: 20230414
